FAERS Safety Report 20708263 (Version 2)
Quarter: 2022Q2

REPORT INFORMATION
  Report Type: Spontaneous
  Country: FR (occurrence: FR)
  Receive Date: 20220414
  Receipt Date: 20220420
  Transmission Date: 20220721
  Serious: Yes (Hospitalization, Other)
  Sender: FDA-Public Use
  Company Number: FR-01054554290-2010SP063823

PATIENT
  Age: 58 Year
  Sex: Female

DRUGS (11)
  1. CELESTAMINE [Suspect]
     Active Substance: BETAMETHASONE\DEXCHLORPHENIRAMINE MALEATE
     Indication: Pruritus
     Dosage: 3 DOSES DAILY
     Route: 048
     Dates: start: 20101020, end: 20101026
  2. EZETIMIBE\SIMVASTATIN [Suspect]
     Active Substance: EZETIMIBE\SIMVASTATIN
     Indication: Dyslipidaemia
     Dosage: 1 DF, QD
     Route: 048
     Dates: start: 20101020, end: 20101026
  3. LAMISIL [Suspect]
     Active Substance: TERBINAFINE HYDROCHLORIDE
     Indication: Fungal infection
     Dosage: 250 MG, TID
     Route: 048
     Dates: start: 20101005, end: 20101026
  4. BIFONAZOLE [Suspect]
     Active Substance: BIFONAZOLE
     Indication: Fungal infection
     Dosage: UNK
     Route: 061
     Dates: start: 20101005, end: 20101026
  5. GLUCOR [Suspect]
     Active Substance: ACARBOSE
     Indication: Type 2 diabetes mellitus
     Dosage: 100 MG, BID
     Route: 048
     Dates: start: 20101020, end: 20101026
  6. WHITE PETROLATUM [Suspect]
     Active Substance: PETROLATUM
     Indication: Type 2 diabetes mellitus
     Dosage: 1 DF, BID
     Route: 048
     Dates: start: 20101020, end: 20101026
  7. ROCEPHIN [Suspect]
     Active Substance: CEFTRIAXONE SODIUM
     Indication: Pneumonia
     Dosage: UNK
     Route: 030
     Dates: start: 20101020, end: 20101026
  8. FUSIDATE SODIUM [Suspect]
     Active Substance: FUSIDATE SODIUM
     Indication: Paronychia
     Dosage: UNK
     Route: 061
     Dates: start: 20101020, end: 20101026
  9. BETAMETHASONE VALERATE [Suspect]
     Active Substance: BETAMETHASONE VALERATE
     Indication: Fungal infection
     Dosage: 2 APPLICATIONS DAILY
     Route: 061
     Dates: start: 20101005, end: 20101026
  10. METFORMIN HYDROCHLORIDE\VILDAGLIPTIN [Suspect]
     Active Substance: METFORMIN HYDROCHLORIDE\VILDAGLIPTIN
     Indication: Type 2 diabetes mellitus
     Dosage: 1 DOSAGE FORM, BID
     Route: 048
     Dates: start: 20101020, end: 20101026
  11. LEVOTHYROXINE [Concomitant]
     Active Substance: LEVOTHYROXINE
     Dosage: UNK

REACTIONS (1)
  - Acute generalised exanthematous pustulosis [Recovered/Resolved with Sequelae]

NARRATIVE: CASE EVENT DATE: 20101022
